FAERS Safety Report 8823723 (Version 1)
Quarter: 2012Q4

REPORT INFORMATION
  Report Type: 
  Country: US (occurrence: US)
  Receive Date: 20121003
  Receipt Date: 20121003
  Transmission Date: 20130627
  Serious: Yes (Other)
  Sender: FDA-Public Use
  Company Number: US-ASTRAZENECA-2012SE01243

PATIENT
  Age: 51 Year
  Sex: Female
  Weight: 56.2 kg

DRUGS (7)
  1. SEROQUEL [Suspect]
     Indication: SLEEP DISORDER
     Route: 048
  2. SEROQUEL [Suspect]
     Indication: SLEEP DISORDER
     Route: 048
  3. AMBIEN [Concomitant]
     Indication: SLEEP DISORDER
     Route: 048
  4. NORCO [Concomitant]
     Indication: PAIN
     Dosage: 10/325 MG, Q4H
     Route: 048
  5. ZANTAC [Concomitant]
     Indication: GASTRIC DISORDER
     Route: 048
  6. PRILOSEC [Concomitant]
     Indication: GASTRIC DISORDER
     Route: 048
  7. FLEXORIL [Concomitant]
     Route: 048

REACTIONS (8)
  - Ligament rupture [Unknown]
  - Fall [Unknown]
  - Weight fluctuation [Unknown]
  - Stress [Unknown]
  - Insomnia [Unknown]
  - Off label use [Unknown]
  - Joint injury [Unknown]
  - Drug ineffective [Unknown]
